FAERS Safety Report 6708427-X (Version None)
Quarter: 2010Q2

REPORT INFORMATION
  Report Type: 
  Country: None (occurrence: None)
  Receive Date: 20100503
  Receipt Date: 20090316
  Transmission Date: 20101027
  Serious: No
  Sender: FDA-Public Use
  Company Number: US-ASTRAZENECA-2009UW06790

PATIENT
  Age: 27864 Day
  Sex: Female
  Weight: 65.3 kg

DRUGS (15)
  1. NEXIUM [Suspect]
     Indication: GASTROOESOPHAGEAL REFLUX DISEASE
     Route: 048
     Dates: start: 20090307
  2. EMBREL [Suspect]
  3. METHOTREXATE [Concomitant]
  4. FOLIC ACID [Concomitant]
  5. NITROGLYCERIN [Concomitant]
  6. XANAX [Concomitant]
  7. CLONAZEPAM [Concomitant]
  8. CRYSTALLINE VIT B12 INJ [Concomitant]
  9. FENTANYL [Concomitant]
  10. TOPROL-XL [Concomitant]
     Route: 048
  11. CARDIZEM [Concomitant]
  12. SPIRIVA [Concomitant]
  13. PERCOCET [Concomitant]
  14. CYMBALTA [Concomitant]
  15. PROAIR HFA [Concomitant]

REACTIONS (6)
  - ARTHRITIS [None]
  - FACE OEDEMA [None]
  - FATIGUE [None]
  - INFLUENZA LIKE ILLNESS [None]
  - OEDEMA PERIPHERAL [None]
  - PALPITATIONS [None]
